FAERS Safety Report 4704803-5 (Version None)
Quarter: 2005Q3

REPORT INFORMATION
  Report Type: 
  Country: None (occurrence: None)
  Receive Date: 20050701
  Receipt Date: 20050628
  Transmission Date: 20060218
  Serious: Yes (Death)
  Sender: FDA-Public Use
  Company Number: AU-RB-1838-2005

PATIENT
  Age: 26 Year
  Sex: Male
  Weight: 89 kg

DRUGS (9)
  1. BUPRENORPHINE [Suspect]
     Dosage: UNKNOWN DOSE
     Route: 065
  2. METHYLENEDIOXYMETHAMPHETAMINE [Suspect]
     Dosage: TOXIC CONCENTRATION : 2.4 MG/L IN BLOOD
     Route: 065
  3. OLANZAPINE [Suspect]
     Dosage: DOSE UNKNWON
     Route: 065
  4. DOXEPIN HCL [Suspect]
     Dosage: DOSE UNKNOWN
     Route: 065
  5. DIAZEPAM [Suspect]
     Dosage: DOSE UNKNOWN
     Route: 065
  6. OXAZEPAM [Suspect]
     Dosage: DOSE UNKNOWN
     Route: 065
  7. TEMAZEPAM [Suspect]
     Dosage: DOSE UNKNOWN
     Route: 065
  8. PSEUDOEPHEDRINE HCL [Suspect]
     Dosage: DOSE UNKNOWN
     Route: 065
  9. NALTREXONE [Suspect]
     Dosage: DOSE UNKNWON
     Route: 065

REACTIONS (3)
  - DRUG LEVEL BELOW THERAPEUTIC [None]
  - DRUG TOXICITY [None]
  - PULMONARY OEDEMA [None]
